FAERS Safety Report 9049802 (Version 1)
Quarter: 2013Q1

REPORT INFORMATION
  Report Type: Spontaneous
  Country: GB (occurrence: GB)
  Receive Date: 20130205
  Receipt Date: 20130205
  Transmission Date: 20140127
  Serious: Yes (Hospitalization)
  Sender: FDA-Public Use
  Company Number: GB-MYLANLABS-2013S1001846

PATIENT
  Age: 19 Year
  Sex: Male
  Weight: 73 kg

DRUGS (2)
  1. ISOTRETINOIN [Suspect]
     Indication: ACNE
     Route: 048
     Dates: start: 20121209, end: 20121210
  2. PARACETAMOL [Suspect]
     Indication: PRODUCT USED FOR UNKNOWN INDICATION
     Dates: start: 20121210

REACTIONS (3)
  - Overdose [Unknown]
  - Suicide attempt [Recovering/Resolving]
  - Liver function test abnormal [Recovering/Resolving]
